FAERS Safety Report 20329501 (Version 1)
Quarter: 2022Q1

REPORT INFORMATION
  Report Type: Spontaneous
  Country: US (occurrence: US)
  Receive Date: 20220112
  Receipt Date: 20220112
  Transmission Date: 20220423
  Serious: Yes (Other)
  Sender: FDA-Public Use
  Company Number: US-Teikoku Pharma USA-TPU2022-00078

PATIENT
  Age: 74 Year
  Sex: Male

DRUGS (2)
  1. LIDODERM [Suspect]
     Active Substance: LIDOCAINE
     Indication: Spinal operation
     Route: 061
  2. LIDODERM [Suspect]
     Active Substance: LIDOCAINE
     Route: 061
     Dates: start: 2021

REACTIONS (3)
  - Spinal operation [Unknown]
  - Drug ineffective for unapproved indication [Unknown]
  - Expired product administered [Unknown]

NARRATIVE: CASE EVENT DATE: 20210715
